FAERS Safety Report 12256459 (Version 2)
Quarter: 2016Q2

REPORT INFORMATION
  Report Type: Spontaneous
  Country: JP (occurrence: JP)
  Receive Date: 20160412
  Receipt Date: 20160412
  Transmission Date: 20160815
  Serious: Yes (Other)
  Sender: FDA-Public Use
  Company Number: PHHY2016JP047431

PATIENT
  Age: 71 Year
  Sex: Female

DRUGS (6)
  1. VOLTAREN [Suspect]
     Active Substance: DICLOFENAC SODIUM
     Indication: GALLBLADDER OPERATION
     Dosage: 50 MG, QD
     Route: 054
     Dates: start: 20160302, end: 20160302
  2. FENTANYL CITRATE. [Suspect]
     Active Substance: FENTANYL CITRATE
     Indication: INDUCTION OF ANAESTHESIA
     Dosage: .15 ML, PER HOUR
     Route: 042
     Dates: start: 20160302, end: 20160302
  3. CEFMETAZOLE SODIUM [Suspect]
     Active Substance: CEFMETAZOLE SODIUM
     Indication: GALLBLADDER OPERATION
     Dosage: 2 G, BID
     Route: 042
     Dates: start: 20160302, end: 20160302
  4. ROCURONIUM BROMIDE. [Suspect]
     Active Substance: ROCURONIUM BROMIDE
     Indication: GALLBLADDER OPERATION
     Dosage: 40 MG, QD
     Route: 042
     Dates: start: 20160302, end: 20160302
  5. ULTIVA [Suspect]
     Active Substance: REMIFENTANIL HYDROCHLORIDE
     Indication: INDUCTION OF ANAESTHESIA
     Dosage: 6 ML, PER HOUR
     Route: 042
     Dates: start: 20160302, end: 20160302
  6. PROPOFOL. [Suspect]
     Active Substance: PROPOFOL
     Indication: GALLBLADDER OPERATION
     Dosage: 40 MG, QD
     Route: 042
     Dates: start: 20160302, end: 20160302

REACTIONS (4)
  - Blood pressure decreased [Recovered/Resolved]
  - Anaphylactic reaction [Recovered/Resolved]
  - Erythema [Recovered/Resolved]
  - Bradycardia [Recovered/Resolved]

NARRATIVE: CASE EVENT DATE: 20160302
